FAERS Safety Report 5006252-1 (Version None)
Quarter: 2006Q1

REPORT INFORMATION
  Report Type: 
  Country: None (occurrence: None)
  Receive Date: 20060327
  Receipt Date: 20060215
  Transmission Date: 20060701
  Serious: Yes (Life-Threatening, Hospitalization, Other)
  Sender: FDA-Public Use
  Company Number: 222228

PATIENT
  Age: 81 Year
  Sex: Male
  Weight: 64.9 kg

DRUGS (7)
  1. AVASTIN [Suspect]
     Indication: COLON CANCER
     Dosage: 352 MG, Q2W, INTRAVENOUS
     Route: 042
     Dates: start: 20060127, end: 20060212
  2. OXALIPLATIN (OXALIPLATIN) [Concomitant]
  3. LEUCOVORIN CALCIUM [Concomitant]
  4. FLUOROURACIL [Concomitant]
  5. ATIVAN [Concomitant]
  6. ZOFRAN [Concomitant]
  7. LISINOPRIL [Concomitant]

REACTIONS (1)
  - DUODENAL PERFORATION [None]
